FAERS Safety Report 7651573-7 (Version None)
Quarter: 2011Q3

REPORT INFORMATION
  Report Type: 
  Country: None (occurrence: None)
  Receive Date: 20110802
  Receipt Date: 20110726
  Transmission Date: 20111222
  Serious: Yes (Hospitalization, Other)
  Sender: FDA-Public Use
  Company Number: JP-ROCHE-786337

PATIENT
  Sex: Male
  Weight: 65 kg

DRUGS (10)
  1. PARAPLATIN [Suspect]
     Indication: NON-SMALL CELL LUNG CANCER
     Route: 042
     Dates: start: 20110404, end: 20110404
  2. TS-1 [Suspect]
     Route: 048
     Dates: start: 20110425, end: 20110509
  3. TS-1 [Suspect]
     Route: 048
     Dates: start: 20110517, end: 20110531
  4. PARAPLATIN [Suspect]
     Route: 042
     Dates: start: 20110425, end: 20110425
  5. LOXONIN [Concomitant]
     Route: 048
     Dates: start: 20110316, end: 20110607
  6. AVASTIN [Suspect]
     Route: 041
     Dates: start: 20110404, end: 20110517
  7. PARAPLATIN [Suspect]
     Route: 042
     Dates: start: 20110517, end: 20110517
  8. TS-1 [Suspect]
     Indication: NON-SMALL CELL LUNG CANCER
     Route: 048
     Dates: start: 20110404, end: 20110418
  9. ASPIRIN [Concomitant]
     Route: 048
     Dates: end: 20110607
  10. BETAMETHASONE [Concomitant]
     Route: 048
     Dates: start: 20110531, end: 20110607

REACTIONS (3)
  - METASTASES TO SMALL INTESTINE [None]
  - INTESTINAL PERFORATION [None]
  - INFECTIOUS PERITONITIS [None]
